FAERS Safety Report 8501792-2 (Version None)
Quarter: 2012Q3

REPORT INFORMATION
  Report Type: 
  Country: None (occurrence: None)
  Receive Date: 20120705
  Receipt Date: 20120705
  Transmission Date: 20120928
  Serious: Yes (Life-Threatening)
  Sender: FDA-Public Use
  Company Number: None

PATIENT
  Age: 73 Year
  Sex: Male
  Weight: 103.8737 kg

DRUGS (1)
  1. NIFEDIPINE [Suspect]
     Indication: HYPERTENSION
     Dosage: 1 TABLET AT BED TIME PO
     Route: 048
     Dates: start: 20120615, end: 20120702

REACTIONS (2)
  - YELLOW SKIN [None]
  - JOINT SWELLING [None]
